FAERS Safety Report 21096713 (Version 1)
Quarter: 2022Q3

REPORT INFORMATION
  Report Type: Report from Study
  Country: US (occurrence: US)
  Receive Date: 20220718
  Receipt Date: 20220718
  Transmission Date: 20221027
  Serious: Yes (Other)
  Sender: FDA-Public Use
  Company Number: US-JNJFOC-20220706910

PATIENT
  Age: 68 Year
  Sex: Male

DRUGS (1)
  1. ERDAFITINIB [Suspect]
     Active Substance: ERDAFITINIB
     Indication: Product used for unknown indication
     Route: 065

REACTIONS (3)
  - Bedridden [Unknown]
  - Fatigue [Unknown]
  - Decreased appetite [Unknown]
